FAERS Safety Report 16662042 (Version 2)
Quarter: 2020Q1

REPORT INFORMATION
  Report Type: Spontaneous
  Country: DE (occurrence: DE)
  Receive Date: 20190802
  Receipt Date: 20200129
  Transmission Date: 20200409
  Serious: No
  Sender: FDA-Public Use
  Company Number: DE-IPSEN-CABO-19018815

PATIENT
  Sex: Female

DRUGS (6)
  1. COMETRIQ [Suspect]
     Active Substance: CABOZANTINIB S-MALATE
     Dosage: 20 MG, QOD
     Dates: start: 2018, end: 2018
  2. COMETRIQ [Suspect]
     Active Substance: CABOZANTINIB S-MALATE
     Dosage: 20 MG, QD
     Dates: start: 2018, end: 201812
  3. COMETRIQ [Suspect]
     Active Substance: CABOZANTINIB S-MALATE
     Dosage: (20 AND 40 MG EVERY OTHER DAY ALTERNATELY)
  4. COMETRIQ [Suspect]
     Active Substance: CABOZANTINIB S-MALATE
     Dosage: 20 MG, UNK
     Dates: start: 20180809, end: 201809
  5. COMETRIQ [Suspect]
     Active Substance: CABOZANTINIB S-MALATE
     Dosage: 140 MG, UNK
     Dates: start: 201808, end: 201808
  6. COMETRIQ [Suspect]
     Active Substance: CABOZANTINIB S-MALATE
     Indication: ADRENAL GLAND CANCER
     Dosage: 20 MG, UNK
     Dates: start: 20180801, end: 201808

REACTIONS (7)
  - Hypertension [Unknown]
  - Diarrhoea [Unknown]
  - Off label use [Unknown]
  - Dry mouth [Unknown]
  - Muscle spasms [Unknown]
  - Hepatic enzyme abnormal [Unknown]
  - Dyspnoea [Unknown]
